FAERS Safety Report 6885641-4 (Version None)
Quarter: 2010Q3

REPORT INFORMATION
  Report Type: 
  Country: None (occurrence: None)
  Receive Date: 20100729
  Receipt Date: 20090324
  Transmission Date: 20110219
  Serious: No
  Sender: FDA-Public Use
  Company Number: US-PFIZER INC-2009175857

PATIENT
  Sex: Female
  Weight: 141 kg

DRUGS (1)
  1. CELEBREX [Suspect]
     Indication: ARTHRITIS
     Dosage: 200 MG, 1X/DAY
     Route: 048
     Dates: end: 20090210

REACTIONS (3)
  - ABDOMINAL DISCOMFORT [None]
  - FIBROMYALGIA [None]
  - RASH [None]
